FAERS Safety Report 11500692 (Version 2)
Quarter: 2015Q3

REPORT INFORMATION
  Report Type: Spontaneous
  Country: US (occurrence: US)
  Receive Date: 20150914
  Receipt Date: 20150929
  Transmission Date: 20151125
  Serious: Yes (Other)
  Sender: FDA-Public Use
  Company Number: US-HOSPIRA-3006442

PATIENT
  Sex: Female

DRUGS (2)
  1. LORAZEPAM. [Suspect]
     Active Substance: LORAZEPAM
     Indication: ANXIETY
     Dosage: ONE IN MORNING AND AFTERNOON; TO TAKE TO BEFORE BED
  2. NEURONTIN [Suspect]
     Active Substance: GABAPENTIN
     Indication: FIBROMYALGIA
     Dosage: ONE IN THE MORNING AND TWO AT NIGHT
     Dates: start: 20150702

REACTIONS (9)
  - Anxiety [Unknown]
  - Incorrect dose administered [Unknown]
  - Diarrhoea [Recovered/Resolved]
  - Nephrolithiasis [Unknown]
  - Blood cholesterol increased [Unknown]
  - Fibromyalgia [Unknown]
  - Renal disorder [Unknown]
  - Dizziness [Unknown]
  - Abdominal pain upper [Unknown]
